FAERS Safety Report 5564087-5 (Version None)
Quarter: 2007Q4

REPORT INFORMATION
  Report Type: 
  Country: None (occurrence: None)
  Receive Date: 20071217
  Receipt Date: 20071205
  Transmission Date: 20080405
  Serious: Yes (Other)
  Sender: FDA-Public Use
  Company Number: US-PFIZER INC-2007091646

PATIENT
  Sex: Male
  Weight: 93 kg

DRUGS (3)
  1. CHANTIX [Suspect]
     Indication: SMOKING CESSATION THERAPY
  2. REGULAR INSULIN [Concomitant]
     Dosage: TEXT:22 UNITS
  3. NEUTRAL INSULIN INJECTION [Concomitant]
     Dosage: TEXT:104 UNITS

REACTIONS (2)
  - BLOOD GLUCOSE ABNORMAL [None]
  - BLOOD GLUCOSE INCREASED [None]
